FAERS Safety Report 20664417 (Version 1)
Quarter: 2022Q2

REPORT INFORMATION
  Report Type: Spontaneous
  Country: PH (occurrence: PH)
  Receive Date: 20220401
  Receipt Date: 20220401
  Transmission Date: 20220721
  Serious: Yes (Hospitalization, Other)
  Sender: FDA-Public Use
  Company Number: PH-009507513-2203PHL007976

PATIENT
  Sex: Female

DRUGS (2)
  1. METFORMIN\SITAGLIPTIN [Suspect]
     Active Substance: METFORMIN\SITAGLIPTIN
     Indication: Diabetes mellitus
     Dosage: STRENGTH: 50MG/500MG
     Route: 048
  2. JANUMET [Suspect]
     Active Substance: METFORMIN HYDROCHLORIDE\SITAGLIPTIN PHOSPHATE
     Indication: Diabetes mellitus
     Route: 048

REACTIONS (5)
  - Neoplasm [Unknown]
  - Diabetes mellitus inadequate control [Unknown]
  - Rash pruritic [Unknown]
  - Product dose omission issue [Unknown]
  - Treatment noncompliance [Unknown]
